FAERS Safety Report 4345104-7 (Version None)
Quarter: 2004Q2

REPORT INFORMATION
  Report Type: 
  Country: None (occurrence: None)
  Receive Date: 20040421
  Receipt Date: 20040421
  Transmission Date: 20050107
  Serious: Yes (Other)
  Sender: FDA-Public Use
  Company Number: None

PATIENT
  Sex: Male
  Weight: 71.6683 kg

DRUGS (9)
  1. GEODON [Suspect]
     Indication: SCHIZOPHRENIA
     Dates: start: 20040406, end: 20040414
  2. TOPROL-XL [Concomitant]
  3. METOPROLOL [Concomitant]
  4. ABILIFY [Concomitant]
  5. NEURONTIN [Concomitant]
  6. ACETAMINOPHEN [Concomitant]
  7. MAALOX [Concomitant]
  8. CHLORPHENIRAMINE MALEATE [Concomitant]
  9. BENZTROPINE MESYLATE [Concomitant]

REACTIONS (1)
  - EXTRAPYRAMIDAL DISORDER [None]
